FAERS Safety Report 23149033 (Version 2)
Quarter: 2023Q4

REPORT INFORMATION
  Report Type: Report from Study
  Country: CA (occurrence: CA)
  Receive Date: 20231106
  Receipt Date: 20231212
  Transmission Date: 20240110
  Serious: Yes (Death, Other)
  Sender: FDA-Public Use
  Company Number: CA-SANDOZ-SDZ2023CA040305

PATIENT
  Sex: Male
  Weight: 49 kg

DRUGS (1)
  1. PIRFENIDONE [Suspect]
     Active Substance: PIRFENIDONE
     Indication: Pulmonary fibrosis
     Dosage: UNK
     Route: 048
     Dates: start: 20230326

REACTIONS (3)
  - Death [Fatal]
  - FEV1/FVC ratio decreased [Unknown]
  - Lung diffusion disorder [Unknown]
